FAERS Safety Report 8542525-3 (Version None)
Quarter: 2012Q3

REPORT INFORMATION
  Report Type: 
  Country: None (occurrence: None)
  Receive Date: 20120726
  Receipt Date: 20110812
  Transmission Date: 20120928
  Serious: Yes (Life-Threatening, Other)
  Sender: FDA-Public Use
  Company Number: US-ASTRAZENECA-2011SE48475

PATIENT
  Age: 60 Year
  Sex: Male
  Weight: 122.5 kg

DRUGS (1)
  1. SEROQUEL XR [Suspect]
     Route: 048
     Dates: end: 20110101

REACTIONS (2)
  - FEELING ABNORMAL [None]
  - SUICIDAL IDEATION [None]
